FAERS Safety Report 19015329 (Version 3)
Quarter: 2022Q3

REPORT INFORMATION
  Report Type: Spontaneous
  Country: US (occurrence: US)
  Receive Date: 20210317
  Receipt Date: 20220919
  Transmission Date: 20221027
  Serious: Yes (Other)
  Sender: FDA-Public Use
  Company Number: US-JNJFOC-20210318498

PATIENT
  Age: 7 Decade
  Sex: Female

DRUGS (15)
  1. ELMIRON [Suspect]
     Active Substance: PENTOSAN POLYSULFATE SODIUM
     Indication: Cystitis interstitial
     Route: 048
     Dates: start: 1998, end: 2019
  2. ELMIRON [Suspect]
     Active Substance: PENTOSAN POLYSULFATE SODIUM
     Dosage: PATIENT TOOK THREE PILLS PER DAY, EXCEPT FOR ONE YEAR IN WHICH SHE TOOK FOUR PILLS PER DAY.
     Route: 048
     Dates: start: 19980225
  3. ELMIRON [Suspect]
     Active Substance: PENTOSAN POLYSULFATE SODIUM
     Dosage: PATIENT TOOK THREE PILLS PER DAY, EXCEPT FOR ONE YEAR IN WHICH SHE TOOK FOUR PILLS PER DAY.
     Route: 048
     Dates: start: 2003, end: 2005
  4. ELMIRON [Suspect]
     Active Substance: PENTOSAN POLYSULFATE SODIUM
     Dosage: PATIENT TOOK THREE PILLS PER DAY, EXCEPT FOR ONE YEAR IN WHICH SHE TOOK FOUR PILLS PER DAY.
     Route: 048
     Dates: start: 201009, end: 2019
  5. DULOXETINE [Concomitant]
     Active Substance: DULOXETINE
     Indication: Neuralgia
     Route: 065
     Dates: start: 2008
  6. TRAZODONE [Concomitant]
     Active Substance: TRAZODONE HYDROCHLORIDE
     Indication: Insomnia
     Route: 065
  7. LYRICA [Concomitant]
     Active Substance: PREGABALIN
     Indication: Neuralgia
     Route: 048
     Dates: start: 2008
  8. PROZAC [Concomitant]
     Active Substance: FLUOXETINE HYDROCHLORIDE
     Indication: Chronic fatigue syndrome
     Route: 065
     Dates: start: 1988
  9. FORTEO [Concomitant]
     Active Substance: TERIPARATIDE
     Indication: Osteoporosis
     Route: 065
     Dates: start: 201811, end: 202005
  10. ESTRADIOL [Concomitant]
     Active Substance: ESTRADIOL
     Indication: Vulvovaginal dryness
     Route: 065
  11. RESTASIS [Concomitant]
     Active Substance: CYCLOSPORINE
     Indication: Dry eye
     Route: 065
  12. PROLIA [Concomitant]
     Active Substance: DENOSUMAB
     Indication: Osteoporosis
     Route: 065
     Dates: start: 202006
  13. ULTRAM [Concomitant]
     Active Substance: TRAMADOL HYDROCHLORIDE
     Indication: Neuralgia
     Route: 048
     Dates: start: 2008
  14. HALCION [Concomitant]
     Active Substance: TRIAZOLAM
     Indication: Insomnia
     Route: 065
  15. KLONOPIN [Concomitant]
     Active Substance: CLONAZEPAM
     Indication: Insomnia
     Route: 065

REACTIONS (4)
  - Retinal toxicity [Unknown]
  - Dry age-related macular degeneration [Recovering/Resolving]
  - Off label use [Unknown]
  - Product use issue [Unknown]

NARRATIVE: CASE EVENT DATE: 20180101
